FAERS Safety Report 9850227 (Version 1)
Quarter: 2014Q1

REPORT INFORMATION
  Report Type: Spontaneous
  Country: DE (occurrence: DE)
  Receive Date: 20140128
  Receipt Date: 20140128
  Transmission Date: 20141002
  Serious: Yes (Other)
  Sender: FDA-Public Use
  Company Number: DE-ALEXION PHARMACEUTICALS INC.-A201400188

PATIENT
  Age: 27 Year
  Sex: Male

DRUGS (5)
  1. SOLIRIS 300MG [Suspect]
     Indication: RENAL TRANSPLANT
     Dosage: 1200 MG, Q2W
     Route: 042
     Dates: start: 20131029
  2. SOLIRIS 300MG [Suspect]
     Indication: OFF LABEL USE
  3. PROGRAF [Concomitant]
     Indication: IMMUNOSUPPRESSION
     Dosage: 5 MG, UNK
     Route: 048
     Dates: start: 20130121
  4. CELLCEPT                           /01275102/ [Concomitant]
     Indication: IMMUNOSUPPRESSION
     Dosage: 1500 MG, QD
     Route: 048
     Dates: start: 20130121
  5. DECORTIN H [Concomitant]
     Indication: IMMUNOSUPPRESSION
     Dosage: 5 MG, QD
     Route: 048

REACTIONS (6)
  - Blood creatinine increased [Recovered/Resolved]
  - Renal vascular thrombosis [Unknown]
  - Blood lactate dehydrogenase increased [Recovered/Resolved]
  - Transplant rejection [Unknown]
  - Off label use [Unknown]
  - Nasopharyngitis [Unknown]
